FAERS Safety Report 14975030 (Version 1)
Quarter: 2018Q2

REPORT INFORMATION
  Report Type: Spontaneous
  Country: FR (occurrence: FR)
  Receive Date: 20180605
  Receipt Date: 20180605
  Transmission Date: 20180711
  Serious: Yes (Other)
  Sender: FDA-Public Use
  Company Number: FR-JACOBUS PHARMACEUTICAL COMPANY, INC.-2049021

PATIENT
  Age: 46 Year

DRUGS (2)
  1. PASER [Concomitant]
     Active Substance: AMINOSALICYLIC ACID
  2. PASER [Suspect]
     Active Substance: AMINOSALICYLIC ACID
     Indication: TUBERCULOSIS

REACTIONS (1)
  - Electrocardiogram QT prolonged [Recovered/Resolved]
